FAERS Safety Report 15792490 (Version 2)
Quarter: 2019Q1

REPORT INFORMATION
  Report Type: Spontaneous
  Country: DE (occurrence: DE)
  Receive Date: 20190107
  Receipt Date: 20190121
  Transmission Date: 20190417
  Serious: Yes (Other)
  Sender: FDA-Public Use
  Company Number: DE-AUROBINDO-AUR-APL-2018-063881

PATIENT
  Age: 57 Year
  Sex: Male

DRUGS (3)
  1. LEVETIRACETAM. [Suspect]
     Active Substance: LEVETIRACETAM
     Indication: SEIZURE
  2. LEVETIRACETAM. [Suspect]
     Active Substance: LEVETIRACETAM
     Indication: EPILEPSY
     Dosage: 500 MILLIGRAM, TWO TIMES A DAY (1000 MILLIGRAM DAILY; FOR MORE THAN 10 YEARS)
     Route: 065
  3. BRIVARACETAM [Suspect]
     Active Substance: BRIVARACETAM
     Indication: EPILEPSY
     Dosage: 50 MILLIGRAM, ONCE A DAY
     Route: 065

REACTIONS (6)
  - Abnormal behaviour [Recovering/Resolving]
  - Memory impairment [Recovered/Resolved]
  - Urine odour abnormal [Recovering/Resolving]
  - Skin odour abnormal [Recovering/Resolving]
  - Off label use [Unknown]
  - Irritability [Recovered/Resolved]
